FAERS Safety Report 9304562 (Version 3)
Quarter: 2013Q3

REPORT INFORMATION
  Report Type: Spontaneous
  Country: CN (occurrence: CN)
  Receive Date: 20130523
  Receipt Date: 20130710
  Transmission Date: 20140515
  Serious: Yes (Other)
  Sender: FDA-Public Use
  Company Number: CN-ROCHE-1227562

PATIENT
  Age: 51 Year
  Sex: Female
  Weight: 54.5 kg

DRUGS (4)
  1. XELODA [Suspect]
     Indication: BREAST CANCER RECURRENT
     Route: 048
     Dates: start: 201208, end: 201212
  2. XELODA [Suspect]
     Route: 048
     Dates: start: 201212
  3. XELODA [Suspect]
     Route: 048
     Dates: start: 201304
  4. LETROZOLE [Suspect]
     Indication: BREAST CANCER RECURRENT
     Route: 048
     Dates: start: 201208, end: 201212

REACTIONS (4)
  - Carcinoembryonic antigen increased [Not Recovered/Not Resolved]
  - Asthenia [Recovered/Resolved]
  - Skin exfoliation [Recovered/Resolved]
  - Suspected counterfeit product [Unknown]
